FAERS Safety Report 9929962 (Version 4)
Quarter: 2015Q1

REPORT INFORMATION
  Report Type: Report from Study
  Country: HU (occurrence: HU)
  Receive Date: 20140227
  Receipt Date: 20150203
  Transmission Date: 20150721
  Serious: Yes (Death, Hospitalization)
  Sender: FDA-Public Use
  Company Number: PHHO2014HU001333

PATIENT
  Age: 68 Year
  Sex: Female
  Weight: 78.4 kg

DRUGS (3)
  1. CEFUROXIME. [Suspect]
     Active Substance: CEFUROXIME
     Indication: PRODUCT USED FOR UNKNOWN INDICATION
     Route: 065
  2. AFINITOR [Suspect]
     Active Substance: EVEROLIMUS
     Indication: BREAST CANCER METASTATIC
     Dosage: 5 MG, QD
     Route: 048
     Dates: start: 20130320, end: 20131225
  3. EXEMESTANE. [Suspect]
     Active Substance: EXEMESTANE
     Indication: BREAST CANCER METASTATIC
     Dosage: 25 MG, QD
     Route: 048
     Dates: start: 20130320, end: 20131225

REACTIONS (3)
  - Renal failure [Fatal]
  - Pneumonia [Fatal]
  - Cardiopulmonary failure [Fatal]

NARRATIVE: CASE EVENT DATE: 20140121
